FAERS Safety Report 8822659 (Version 5)
Quarter: 2012Q4

REPORT INFORMATION
  Report Type: 
  Country: US (occurrence: US)
  Receive Date: 20121003
  Receipt Date: 20121227
  Transmission Date: 20130627
  Serious: Yes (Hospitalization, Other)
  Sender: FDA-Public Use
  Company Number: US-CELGENEUS-163-21880-12080689

PATIENT
  Sex: Male
  Weight: 77.63 kg

DRUGS (6)
  1. REVLIMID [Suspect]
     Indication: MULTIPLE MYELOMA
     Dosage: 25 Milligram
     Route: 048
     Dates: start: 20100713
  2. DEXAMETHASONE [Concomitant]
     Indication: MULTIPLE MYELOMA
     Dosage: 20 Milligram
     Route: 065
     Dates: start: 2010
  3. PRILOSEC [Concomitant]
     Indication: INDIGESTION
     Dosage: 20 Milligram
     Route: 065
  4. MS CONTIN [Concomitant]
     Indication: PAIN
     Dosage: 90 Milligram
     Route: 065
     Dates: start: 2010
  5. COUMADIN [Concomitant]
     Indication: PULMONARY EMBOLUS
     Route: 065
     Dates: start: 200911
  6. ZOMETA [Concomitant]
     Indication: DRUG USE FOR UNKNOWN INDICATION
     Route: 065

REACTIONS (13)
  - Jaw disorder [Unknown]
  - Tooth loss [Unknown]
  - Insomnia [Unknown]
  - Pulmonary thrombosis [Unknown]
  - Sneezing [Unknown]
  - Rhinorrhoea [Unknown]
  - Nausea [Unknown]
  - Vomiting [Unknown]
  - Constipation [Unknown]
  - Drug dose omission [Unknown]
  - Drug administration error [Unknown]
  - Polyp [Unknown]
  - Cataract [Recovered/Resolved]
